FAERS Safety Report 8450145 (Version 2)
Quarter: 2012Q4

REPORT INFORMATION
  Report Type: 
  Country: US (occurrence: US)
  Receive Date: 20120309
  Receipt Date: 20121023
  Transmission Date: 20130627
  Serious: Yes (Life-Threatening, Other)
  Sender: FDA-Public Use
  Company Number: US-BAYER-2012-022207

PATIENT
  Sex: Female

DRUGS (4)
  1. YAZ [Suspect]
     Route: 048
  2. YASMIN [Suspect]
     Route: 048
  3. OCELLA [Suspect]
     Route: 048
  4. GIANVI [Suspect]

REACTIONS (8)
  - Deep vein thrombosis [None]
  - Pain [None]
  - Injury [None]
  - Thrombosis [None]
  - General physical health deterioration [None]
  - Anxiety [None]
  - Pain [None]
  - Anhedonia [None]
